FAERS Safety Report 23967742 (Version 5)
Quarter: 2025Q3

REPORT INFORMATION
  Report Type: Spontaneous
  Country: GB (occurrence: GB)
  Receive Date: 20240612
  Receipt Date: 20250918
  Transmission Date: 20251021
  Serious: Yes (Other)
  Sender: MYLAN
  Company Number: GB-MYLANLABS-2024M1043287

PATIENT
  Age: 31 Year
  Sex: Male
  Weight: 178 kg

DRUGS (36)
  1. CLOZARIL [Suspect]
     Active Substance: CLOZAPINE
     Indication: Schizophrenia
     Dosage: 225 MILLIGRAM, QD
     Route: 048
     Dates: start: 20220307, end: 20240504
  2. CLOZARIL [Suspect]
     Active Substance: CLOZAPINE
     Dosage: 225 MILLIGRAM, QD
     Dates: start: 20220307, end: 20240504
  3. CLOZARIL [Suspect]
     Active Substance: CLOZAPINE
     Dosage: 225 MILLIGRAM, QD
     Dates: start: 20220307, end: 20240504
  4. CLOZARIL [Suspect]
     Active Substance: CLOZAPINE
     Dosage: 225 MILLIGRAM, QD
     Route: 048
     Dates: start: 20220307, end: 20240504
  5. CLOZARIL [Suspect]
     Active Substance: CLOZAPINE
     Route: 048
  6. CLOZARIL [Suspect]
     Active Substance: CLOZAPINE
  7. CLOZARIL [Suspect]
     Active Substance: CLOZAPINE
  8. CLOZARIL [Suspect]
     Active Substance: CLOZAPINE
     Route: 048
  9. PROPRANOLOL [Concomitant]
     Active Substance: PROPRANOLOL HYDROCHLORIDE
     Indication: Anxiety
     Dosage: 40 MILLIGRAM, BID
     Dates: start: 2016
  10. PROPRANOLOL [Concomitant]
     Active Substance: PROPRANOLOL HYDROCHLORIDE
     Dosage: 40 MILLIGRAM, BID
     Route: 065
     Dates: start: 2016
  11. PROPRANOLOL [Concomitant]
     Active Substance: PROPRANOLOL HYDROCHLORIDE
     Dosage: 40 MILLIGRAM, BID
     Route: 065
     Dates: start: 2016
  12. PROPRANOLOL [Concomitant]
     Active Substance: PROPRANOLOL HYDROCHLORIDE
     Dosage: 40 MILLIGRAM, BID
     Dates: start: 2016
  13. FLUOXETINE [Concomitant]
     Active Substance: FLUOXETINE HYDROCHLORIDE
     Indication: Anxiety
     Dosage: 60 MILLIGRAM, QD
     Dates: start: 202103
  14. FLUOXETINE [Concomitant]
     Active Substance: FLUOXETINE HYDROCHLORIDE
     Dosage: 60 MILLIGRAM, QD
     Route: 065
     Dates: start: 202103
  15. FLUOXETINE [Concomitant]
     Active Substance: FLUOXETINE HYDROCHLORIDE
     Dosage: 60 MILLIGRAM, QD
     Route: 065
     Dates: start: 202103
  16. FLUOXETINE [Concomitant]
     Active Substance: FLUOXETINE HYDROCHLORIDE
     Dosage: 60 MILLIGRAM, QD
     Dates: start: 202103
  17. PROMETHAZINE [Concomitant]
     Active Substance: PROMETHAZINE HYDROCHLORIDE
     Indication: Agitation
  18. PROMETHAZINE [Concomitant]
     Active Substance: PROMETHAZINE HYDROCHLORIDE
     Route: 065
  19. PROMETHAZINE [Concomitant]
     Active Substance: PROMETHAZINE HYDROCHLORIDE
     Route: 065
  20. PROMETHAZINE [Concomitant]
     Active Substance: PROMETHAZINE HYDROCHLORIDE
  21. LITHIUM [Concomitant]
     Active Substance: LITHIUM
     Indication: Affect lability
     Dosage: 1100 MILLIGRAM, QD
     Route: 065
     Dates: start: 201806
  22. LITHIUM [Concomitant]
     Active Substance: LITHIUM
     Dosage: 1100 MILLIGRAM, QD
     Dates: start: 201806
  23. LITHIUM [Concomitant]
     Active Substance: LITHIUM
     Dosage: 1100 MILLIGRAM, QD
     Dates: start: 201806
  24. LITHIUM [Concomitant]
     Active Substance: LITHIUM
     Dosage: 1100 MILLIGRAM, QD
     Route: 065
     Dates: start: 201806
  25. LITHIUM [Concomitant]
     Active Substance: LITHIUM
     Route: 065
  26. LITHIUM [Concomitant]
     Active Substance: LITHIUM
  27. LITHIUM [Concomitant]
     Active Substance: LITHIUM
  28. LITHIUM [Concomitant]
     Active Substance: LITHIUM
     Route: 065
  29. DIAZEPAM [Concomitant]
     Active Substance: DIAZEPAM
     Dosage: 2 MILLIGRAM, TID
  30. DIAZEPAM [Concomitant]
     Active Substance: DIAZEPAM
     Dosage: 2 MILLIGRAM, TID
     Route: 065
  31. DIAZEPAM [Concomitant]
     Active Substance: DIAZEPAM
     Dosage: 2 MILLIGRAM, TID
     Route: 065
  32. DIAZEPAM [Concomitant]
     Active Substance: DIAZEPAM
     Dosage: 2 MILLIGRAM, TID
  33. RISPERIDONE [Concomitant]
     Active Substance: RISPERIDONE
     Dosage: 7 MILLIGRAM, QD
  34. RISPERIDONE [Concomitant]
     Active Substance: RISPERIDONE
     Dosage: 7 MILLIGRAM, QD
     Route: 065
  35. RISPERIDONE [Concomitant]
     Active Substance: RISPERIDONE
     Dosage: 7 MILLIGRAM, QD
     Route: 065
  36. RISPERIDONE [Concomitant]
     Active Substance: RISPERIDONE
     Dosage: 7 MILLIGRAM, QD

REACTIONS (10)
  - Mental impairment [Unknown]
  - Hallucination, auditory [Unknown]
  - Obesity [Not Recovered/Not Resolved]
  - Anaemia [Unknown]
  - Anxiety [Not Recovered/Not Resolved]
  - Paranoia [Unknown]
  - Malaise [Unknown]
  - Fatigue [Recovered/Resolved]
  - Constipation [Recovering/Resolving]
  - Sedation [Unknown]

NARRATIVE: CASE EVENT DATE: 20220101
